FAERS Safety Report 20314363 (Version 1)
Quarter: 2022Q1

REPORT INFORMATION
  Report Type: Spontaneous
  Country: US (occurrence: US)
  Receive Date: 20220109
  Receipt Date: 20220109
  Transmission Date: 20220423
  Serious: No
  Sender: FDA-Public Use
  Company Number: US-SA-SAC20220107000429

PATIENT
  Age: 59 Year
  Sex: Female

DRUGS (11)
  1. DUPIXENT [Suspect]
     Active Substance: DUPILUMAB
     Indication: Asthma
     Dosage: 300 MG, QOW
     Route: 058
     Dates: start: 20191003
  2. BUMETANIDE [Concomitant]
     Active Substance: BUMETANIDE
  3. CELECOXIB [Concomitant]
     Active Substance: CELECOXIB
  4. DEXILANT [Concomitant]
     Active Substance: DEXLANSOPRAZOLE
  5. HYDROCHLOROTHIAZIDE [Concomitant]
     Active Substance: HYDROCHLOROTHIAZIDE
  6. JANUVIA [Concomitant]
     Active Substance: SITAGLIPTIN PHOSPHATE
  7. JARDIANCE [Concomitant]
     Active Substance: EMPAGLIFLOZIN
  8. LISINOPRIL [Concomitant]
     Active Substance: LISINOPRIL
  9. MEDROXYPROGESTERONE [Concomitant]
     Active Substance: MEDROXYPROGESTERONE
  10. ACETAZOLAMIDE [Concomitant]
     Active Substance: ACETAZOLAMIDE
  11. METOPROLOL TARTRATE [Concomitant]
     Active Substance: METOPROLOL TARTRATE

REACTIONS (2)
  - Malaise [Unknown]
  - Product dose omission issue [Unknown]

NARRATIVE: CASE EVENT DATE: 20210101
